FAERS Safety Report 5282580-X (Version None)
Quarter: 2007Q1

REPORT INFORMATION
  Report Type: 
  Country: None (occurrence: None)
  Receive Date: 20070326
  Receipt Date: 20070315
  Transmission Date: 20070707
  Serious: Yes (Other)
  Sender: FDA-Public Use
  Company Number: 232039K07USA

PATIENT
  Age: 63 Year
  Sex: Male
  Weight: 106.5953 kg

DRUGS (5)
  1. REBIF [Suspect]
     Indication: MULTIPLE SCLEROSIS
     Dosage: 44 MCG, 3 IN 1 WEEKS, SUBCUTANEOUS
     Route: 058
     Dates: start: 20051209
  2. PROPRANOLOL [Concomitant]
  3. PAXIL [Concomitant]
  4. HYTRIN [Concomitant]
  5. IBUPROFEN [Concomitant]

REACTIONS (1)
  - DIABETES MELLITUS [None]
